FAERS Safety Report 17577947 (Version 2)
Quarter: 2020Q1

REPORT INFORMATION
  Report Type: Report from Study
  Country: CH (occurrence: CH)
  Receive Date: 20200324
  Receipt Date: 20200331
  Transmission Date: 20200409
  Serious: Yes (Congenital Anomaly, Other)
  Sender: FDA-Public Use
  Company Number: CH-MYLANLABS-2020M1032441

PATIENT
  Sex: Male

DRUGS (4)
  1. PHENTERMINE. [Suspect]
     Active Substance: PHENTERMINE
     Indication: PRODUCT USED FOR UNKNOWN INDICATION
     Route: 064
  2. FLUFENAMIC ACID [Suspect]
     Active Substance: FLUFENAMIC ACID
     Indication: PRODUCT USED FOR UNKNOWN INDICATION
     Route: 064
  3. DICLOFENAC [Suspect]
     Active Substance: DICLOFENAC
     Indication: PRODUCT USED FOR UNKNOWN INDICATION
     Route: 064
  4. TIZANIDINE. [Suspect]
     Active Substance: TIZANIDINE
     Indication: PRODUCT USED FOR UNKNOWN INDICATION
     Route: 064

REACTIONS (2)
  - Foetal exposure during pregnancy [Recovered/Resolved]
  - Hypospadias [Unknown]
